FAERS Safety Report 25648722 (Version 1)
Quarter: 2025Q3

REPORT INFORMATION
  Report Type: Spontaneous
  Country: US (occurrence: US)
  Receive Date: 20250806
  Receipt Date: 20250806
  Transmission Date: 20251020
  Serious: No
  Sender: BRISTOL-MYERS SQUIBB COMPANY
  Company Number: US-BRISTOL-MYERS SQUIBB COMPANY-2025-109131

PATIENT
  Age: 66 Year
  Sex: Male
  Weight: 68.49 kg

DRUGS (3)
  1. SOTYKTU [Suspect]
     Active Substance: DEUCRAVACITINIB
     Indication: Psoriasis
     Dosage: ONCE A DAY
     Route: 048
  2. METFORMIN [Concomitant]
     Active Substance: METFORMIN HYDROCHLORIDE
     Indication: Diabetes mellitus
  3. ATORVASTATIN [Concomitant]
     Active Substance: ATORVASTATIN
     Indication: Product used for unknown indication

REACTIONS (1)
  - Product dose omission issue [Unknown]
